FAERS Safety Report 13165232 (Version 1)
Quarter: 2017Q1

REPORT INFORMATION
  Report Type: Spontaneous
  Country: US (occurrence: US)
  Receive Date: 20170131
  Receipt Date: 20170131
  Transmission Date: 20170428
  Serious: Yes (Hospitalization)
  Sender: FDA-Public Use
  Company Number: US-SCIEGEN PHARMACEUTICALS INC-2017SCILIT00010

PATIENT
  Age: 71 Year
  Sex: Female

DRUGS (3)
  1. HYDROCHLOROTHIAZIDE TABLETS [Suspect]
     Active Substance: HYDROCHLOROTHIAZIDE
     Indication: HYPERTENSION
     Dosage: UNK
     Route: 065
  2. ARMOUR THYROID [Suspect]
     Active Substance: THYROID, PORCINE
     Indication: HYPOTHYROIDISM
     Dosage: UNK
     Route: 065
  3. LEVOTHYROXINE. [Concomitant]
     Active Substance: LEVOTHYROXINE
     Indication: THYROID HORMONE REPLACEMENT THERAPY
     Dosage: UNK
     Route: 065

REACTIONS (9)
  - Palpitations [Unknown]
  - B-cell lymphoma [Unknown]
  - Lymphadenopathy [Unknown]
  - Hypercalcaemia [Recovering/Resolving]
  - Blood parathyroid hormone decreased [None]
  - Hyperthyroidism [Unknown]
  - Constipation [Unknown]
  - Dizziness [Unknown]
  - Disorientation [Unknown]
